FAERS Safety Report 7396663-1 (Version None)
Quarter: 2011Q2

REPORT INFORMATION
  Report Type: 
  Country: None (occurrence: None)
  Receive Date: 20110406
  Receipt Date: 20110401
  Transmission Date: 20111010
  Serious: Yes (Death)
  Sender: FDA-Public Use
  Company Number: PHHY2011US27306

PATIENT
  Sex: Female

DRUGS (3)
  1. LIDOCAINE [Concomitant]
     Dosage: 2 %, UNK
  2. PROCRIT [Concomitant]
     Dosage: 10000 U/ML, UNK
  3. EXJADE [Suspect]
     Dosage: 3 DF
     Route: 048

REACTIONS (1)
  - CARDIAC DISORDER [None]
